FAERS Safety Report 8130955-3 (Version None)
Quarter: 2012Q1

REPORT INFORMATION
  Report Type: 
  Country: None (occurrence: None)
  Receive Date: 20120213
  Receipt Date: 20120210
  Transmission Date: 20120608
  Serious: No
  Sender: FDA-Public Use
  Company Number: US-PFIZER INC-2012037211

PATIENT
  Sex: Female
  Weight: 55.782 kg

DRUGS (4)
  1. AMOXICILLIN [Concomitant]
     Dosage: UNK
  2. XANAX [Concomitant]
     Dosage: UNK
  3. MOTRIN [Concomitant]
     Indication: PAIN
     Dosage: UNK
  4. CHANTIX [Suspect]
     Indication: SMOKING CESSATION THERAPY
     Dosage: 0.5 MG, 1X/DAY
     Route: 048
     Dates: start: 20120208

REACTIONS (2)
  - HUNGER [None]
  - HYPERPHAGIA [None]
